FAERS Safety Report 23198034 (Version 1)
Quarter: 2023Q4

REPORT INFORMATION
  Report Type: Spontaneous
  Country: US (occurrence: US)
  Receive Date: 20231117
  Receipt Date: 20231117
  Transmission Date: 20240110
  Serious: No
  Sender: FDA-Public Use
  Company Number: US-SA-SAC20231115001636

PATIENT
  Age: 17 Year
  Sex: Female

DRUGS (1)
  1. ALTUVIIIO [Suspect]
     Active Substance: EFANESOCTOCOG ALFA
     Dosage: UNK, QM ON-DEMAND FOR MENSTRUAL CYCLES
     Route: 042
     Dates: start: 20231031

REACTIONS (5)
  - Heart rate irregular [Recovered/Resolved]
  - Dysmenorrhoea [Recovered/Resolved]
  - Gait inability [Recovered/Resolved]
  - Hyperhidrosis [Recovered/Resolved]
  - Dysstasia [Recovered/Resolved]

NARRATIVE: CASE EVENT DATE: 20231101
